FAERS Safety Report 8452415-2 (Version None)
Quarter: 2012Q2

REPORT INFORMATION
  Report Type: 
  Country: None (occurrence: None)
  Receive Date: 20120620
  Receipt Date: 20120615
  Transmission Date: 20120825
  Serious: No
  Sender: FDA-Public Use
  Company Number: US-PFIZER INC-2012145242

PATIENT
  Sex: Male
  Weight: 105 kg

DRUGS (4)
  1. NORVASC [Concomitant]
     Indication: HYPERTENSION
     Dosage: 10 MG, DAILY
  2. ATACAND HCT [Concomitant]
     Indication: HYPERTENSION
     Dosage: 32 MG/12.5 MG, DAILY
  3. PERCOCET [Concomitant]
     Indication: BACK PAIN
     Dosage: UNK
  4. LIPITOR [Suspect]
     Indication: BLOOD CHOLESTEROL INCREASED
     Dosage: 40 MG, DAILY
     Route: 048
     Dates: start: 20070801

REACTIONS (1)
  - PAIN IN EXTREMITY [None]
